FAERS Safety Report 5612454-3 (Version None)
Quarter: 2008Q1

REPORT INFORMATION
  Report Type: 
  Country: None (occurrence: None)
  Receive Date: 20080201
  Receipt Date: 20080201
  Transmission Date: 20080703
  Serious: Yes (Other)
  Sender: FDA-Public Use
  Company Number: None

PATIENT
  Age: 80 Year
  Sex: Female
  Weight: 91.6266 kg

DRUGS (1)
  1. WARFARIN SODIUM [Suspect]
     Dosage: TAKE ONE AND ONE-HALF TABLETS DAILY FOR 6 DAYS AND ONE TABLET ON SUNDAY AS DIRECTED
     Dates: start: 19961201

REACTIONS (3)
  - DRUG EFFECT DECREASED [None]
  - INTERNATIONAL NORMALISED RATIO DECREASED [None]
  - THERAPEUTIC RESPONSE UNEXPECTED WITH DRUG SUBSTITUTION [None]
